FAERS Safety Report 9604464 (Version 1)
Quarter: 2013Q4

REPORT INFORMATION
  Report Type: Spontaneous
  Country: US (occurrence: US)
  Receive Date: 20131008
  Receipt Date: 20131008
  Transmission Date: 20140711
  Serious: No
  Sender: FDA-Public Use
  Company Number: US-TEVA-436727USA

PATIENT
  Age: 67 Year
  Sex: Female
  Weight: 70.37 kg

DRUGS (2)
  1. PROAIR HFA [Suspect]
     Indication: CHEST DISCOMFORT
  2. VITAMIN D [Concomitant]
     Indication: HYPOVITAMINOSIS

REACTIONS (5)
  - Drug ineffective [Not Recovered/Not Resolved]
  - Dry throat [Not Recovered/Not Resolved]
  - Fatigue [Not Recovered/Not Resolved]
  - Oropharyngeal pain [Not Recovered/Not Resolved]
  - Off label use [Unknown]
